FAERS Safety Report 10047438 (Version 5)
Quarter: 2014Q2

REPORT INFORMATION
  Report Type: Spontaneous
  Country: US (occurrence: US)
  Receive Date: 20140331
  Receipt Date: 20140627
  Transmission Date: 20141212
  Serious: Yes (Hospitalization, Other)
  Sender: FDA-Public Use
  Company Number: US-BAYER-2014-045829

PATIENT
  Age: 39 Year
  Sex: Female

DRUGS (10)
  1. MIRENA [Suspect]
     Indication: CONTRACEPTION
     Dosage: 20 MCG/24HR, CONT
     Route: 015
     Dates: start: 2009
  2. TYLENOL [PARACETAMOL] [Concomitant]
  3. PROMETHAZINE W/CODEINE [Concomitant]
     Dosage: 2 TABLE SPOONS EVERY BEDTIME AS NEEDED
  4. PROAIR HFA [Concomitant]
     Dosage: 2 PUFFS EVERY 4 HOURS AS NEEDED
  5. PHENTERMINE [Concomitant]
     Dosage: 37.5 MG, QD
     Route: 048
  6. TRAMADOL [Concomitant]
     Dosage: 50 MG, EVERY 4 TO 6 HOURS PRN
     Route: 048
  7. IBUPROFEN [Concomitant]
     Dosage: 800 MG, TID AS NEEDED
     Route: 048
  8. HYDROCHLOROTHIAZIDE [Concomitant]
     Dosage: 25 MG, QD
     Route: 048
  9. PROPRANOLOL [Concomitant]
     Dosage: 80 MG, QHS
     Route: 048
  10. TRIAMCINOLONE [Concomitant]
     Dosage: 0.1 %, BID

REACTIONS (10)
  - Uterine perforation [None]
  - Pregnancy with contraceptive device [None]
  - Abortion spontaneous [None]
  - Device breakage [None]
  - Drug ineffective [None]
  - Infertility female [None]
  - Device difficult to use [None]
  - Injury [None]
  - Pain [None]
  - Emotional distress [None]
